FAERS Safety Report 15155382 (Version 1)
Quarter: 2018Q3

REPORT INFORMATION
  Report Type: Spontaneous
  Country: TR (occurrence: TR)
  Receive Date: 20180717
  Receipt Date: 20180717
  Transmission Date: 20181010
  Serious: Yes (Other)
  Sender: FDA-Public Use
  Company Number: PHHY2018TR045916

PATIENT
  Age: 16 Year
  Sex: Female

DRUGS (8)
  1. PHENYTOIN. [Suspect]
     Active Substance: PHENYTOIN
     Dosage: 3 DF, QD
     Route: 041
  2. DIAZEPAM. [Concomitant]
     Active Substance: DIAZEPAM
     Indication: GENERALISED TONIC-CLONIC SEIZURE
     Dosage: 30 MG, QD
     Route: 042
  3. PHENYTOIN. [Suspect]
     Active Substance: PHENYTOIN
     Indication: GENERALISED TONIC-CLONIC SEIZURE
     Dosage: 30 MG/KG, UNK
     Route: 041
  4. LIDOCAINE. [Concomitant]
     Active Substance: LIDOCAINE
     Indication: GENERALISED TONIC-CLONIC SEIZURE
     Dosage: 3 MG/KG, QH
     Route: 041
  5. MIDAZOLAM [Concomitant]
     Active Substance: MIDAZOLAM HYDROCHLORIDE
     Indication: GENERALISED TONIC-CLONIC SEIZURE
     Dosage: 0.4 MG/KG, QH
     Route: 041
  6. TOPIRAMATE. [Concomitant]
     Active Substance: TOPIRAMATE
     Indication: GENERALISED TONIC-CLONIC SEIZURE
     Dosage: 200 MG, QD
     Route: 065
  7. CARBAMAZEPINE. [Suspect]
     Active Substance: CARBAMAZEPINE
     Indication: GENERALISED TONIC-CLONIC SEIZURE
     Dosage: 1200 MG, QD
     Route: 065
  8. THIOPENTAL [Concomitant]
     Active Substance: THIOPENTAL
     Indication: GENERALISED TONIC-CLONIC SEIZURE
     Dosage: 5 MG/KG, QH
     Route: 041

REACTIONS (4)
  - Liver function test increased [Unknown]
  - Thrombocytopenia [Unknown]
  - Pneumonia [Unknown]
  - Gastrointestinal haemorrhage [Unknown]
